FAERS Safety Report 24526634 (Version 1)
Quarter: 2024Q4

REPORT INFORMATION
  Report Type: Report from Study
  Country: US (occurrence: US)
  Receive Date: 20241021
  Receipt Date: 20241021
  Transmission Date: 20250115
  Serious: No
  Sender: ROCHE
  Company Number: US-ROCHE-2167206

PATIENT
  Age: 67 Year
  Sex: Male

DRUGS (19)
  1. ZELBORAF [Suspect]
     Active Substance: VEMURAFENIB
     Indication: Histiocytosis
     Dosage: 960 MG, TWICE A DAY
     Route: 048
     Dates: start: 20190917
  2. COTELLIC [Suspect]
     Active Substance: COBIMETINIB
     Indication: Histiocytosis
     Dosage: 60 MG DAILY FOR 21 DAYS ON, FOLLOWED BY 7 DAY REST PERIOD
     Route: 048
  3. METOPROLOL [Concomitant]
     Active Substance: METOPROLOL
     Dosage: EVERY DAY
     Route: 048
  4. ATORVASTATIN [Concomitant]
     Active Substance: ATORVASTATIN
     Route: 048
  5. ACETAMINOPHEN [Concomitant]
     Active Substance: ACETAMINOPHEN
  6. AMLODIPINE [Concomitant]
     Active Substance: AMLODIPINE BESYLATE
  7. ASPIRIN [Concomitant]
     Active Substance: ASPIRIN
  8. VITAMIN D3 [Concomitant]
     Active Substance: CHOLECALCIFEROL
  9. COBIMETINIB [Concomitant]
     Active Substance: COBIMETINIB
  10. HYDROCORTISONE [Concomitant]
     Active Substance: HYDROCORTISONE
  11. METOPROLOL [Concomitant]
     Active Substance: METOPROLOL
  12. VITAMIN B COMPLEX [Concomitant]
     Active Substance: CYANOCOBALAMIN\DEXPANTHENOL\NIACINAMIDE\PYRIDOXINE HYDROCHLORIDE\RIBOFLAVIN 5^-PHOSPHATE SODIUM\THIA
  13. CINNAMON [Concomitant]
     Active Substance: CINNAMON
  14. OLMESARTAN [Concomitant]
     Active Substance: OLMESARTAN
  15. ONDANSETRON [Concomitant]
     Active Substance: ONDANSETRON
  16. VEMURAFENIB [Concomitant]
     Active Substance: VEMURAFENIB
  17. NORVASC [Concomitant]
     Active Substance: AMLODIPINE BESYLATE
  18. ASPIRIN [Concomitant]
     Active Substance: ASPIRIN
  19. TOPROL XL [Concomitant]
     Active Substance: METOPROLOL SUCCINATE

REACTIONS (5)
  - Oropharyngeal pain [Unknown]
  - Dysarthria [Unknown]
  - Incorrect dose administered [Unknown]
  - Vomiting [Unknown]
  - Illness [Unknown]
